FAERS Safety Report 7609803-3 (Version None)
Quarter: 2011Q3

REPORT INFORMATION
  Report Type: 
  Country: None (occurrence: None)
  Receive Date: 20110714
  Receipt Date: 20110712
  Transmission Date: 20111222
  Serious: Yes (Other)
  Sender: FDA-Public Use
  Company Number: GB-PFIZER INC-2011157991

PATIENT
  Age: 57 Year
  Sex: Male
  Weight: 78 kg

DRUGS (3)
  1. IPRATROPIUM BROMIDE [Concomitant]
     Indication: CHRONIC OBSTRUCTIVE PULMONARY DISEASE
     Dosage: 40 UG, 4X/DAY
     Route: 055
     Dates: start: 20080101
  2. VARENICLINE TARTRATE [Suspect]
     Indication: SMOKING CESSATION THERAPY
     Dosage: UNK
     Route: 048
     Dates: start: 20110225, end: 20110301
  3. SALBUTAMOL [Concomitant]
     Indication: CHRONIC OBSTRUCTIVE PULMONARY DISEASE
     Dosage: 200 UG, 4X/DAY
     Route: 055
     Dates: start: 20080101

REACTIONS (6)
  - FATIGUE [None]
  - AGITATION [None]
  - DEPRESSION [None]
  - MEMORY IMPAIRMENT [None]
  - ANGER [None]
  - SUICIDAL IDEATION [None]
